FAERS Safety Report 19840246 (Version 1)
Quarter: 2021Q3

REPORT INFORMATION
  Report Type: Spontaneous
  Country: US (occurrence: US)
  Receive Date: 20210915
  Receipt Date: 20210915
  Transmission Date: 20211014
  Serious: No
  Sender: FDA-Public Use
  Company Number: None

PATIENT
  Sex: Male

DRUGS (1)
  1. AVONEX PEN [Suspect]
     Active Substance: INTERFERON BETA-1A
     Indication: MULTIPLE SCLEROSIS
     Dosage: ?          OTHER DOSE:30 MCG;?
     Route: 030
     Dates: start: 20150101

REACTIONS (5)
  - Confusional state [None]
  - Decreased appetite [None]
  - Disorientation [None]
  - COVID-19 immunisation [None]
  - Impaired work ability [None]
